FAERS Safety Report 23623473 (Version 2)
Quarter: 2024Q2

REPORT INFORMATION
  Report Type: Spontaneous
  Country: US (occurrence: US)
  Receive Date: 20240312
  Receipt Date: 20240501
  Transmission Date: 20240715
  Serious: Yes (Death, Hospitalization, Other)
  Sender: FDA-Public Use
  Company Number: US-TAKEDA-2024TUS022583

PATIENT
  Age: 13 Year
  Sex: Female
  Weight: 47 kg

DRUGS (10)
  1. LIVTENCITY [Suspect]
     Active Substance: MARIBAVIR
     Indication: Cytomegalovirus infection
     Dosage: UNK UNK, BID
     Route: 048
     Dates: start: 20231124, end: 20231221
  2. LIVTENCITY [Suspect]
     Active Substance: MARIBAVIR
     Indication: Toxicity to various agents
  3. LIVTENCITY [Suspect]
     Active Substance: MARIBAVIR
     Indication: Cytomegalovirus myocarditis
  4. LIVTENCITY [Suspect]
     Active Substance: MARIBAVIR
     Indication: Cytomegalovirus test positive
  5. TACROLIMUS [Concomitant]
     Active Substance: TACROLIMUS
     Indication: Transplant
     Dosage: 5 MILLIGRAM, BID
     Route: 048
     Dates: end: 20231205
  6. MYCOPHENOLIC ACID [Concomitant]
     Active Substance: MYCOPHENOLIC ACID
     Indication: Transplant
     Dosage: 500 MILLIGRAM, BID
     Route: 048
  7. TERBINAFINE [Concomitant]
     Active Substance: TERBINAFINE
     Indication: Tinea capitis
     Dosage: 125 MILLIGRAM, QD
     Route: 048
     Dates: start: 20231121, end: 20231207
  8. SIROLIMUS [Concomitant]
     Active Substance: SIROLIMUS
     Indication: Transplant
     Dosage: 1.3 MILLIGRAM, QD
     Route: 048
     Dates: start: 20231210, end: 20240118
  9. ONDANSETRON [Concomitant]
     Active Substance: ONDANSETRON
     Indication: Vomiting
     Dosage: 6 MILLIGRAM, QID
     Route: 048
     Dates: start: 20231206, end: 20231216
  10. ONDANSETRON [Concomitant]
     Active Substance: ONDANSETRON
     Indication: Nausea
     Dosage: 8 MILLIGRAM, TID
     Route: 048
     Dates: start: 20231216, end: 20231217

REACTIONS (8)
  - Gastrointestinal haemorrhage [Fatal]
  - Pancreatitis [Not Recovered/Not Resolved]
  - Renal failure [Unknown]
  - Renal injury [Unknown]
  - Nausea [Unknown]
  - Diarrhoea [Unknown]
  - Vomiting [Unknown]
  - Product use in unapproved indication [Unknown]

NARRATIVE: CASE EVENT DATE: 20231205
